FAERS Safety Report 7518877-X (Version None)
Quarter: 2011Q2

REPORT INFORMATION
  Report Type: 
  Country: None (occurrence: None)
  Receive Date: 20110602
  Receipt Date: 20110525
  Transmission Date: 20111010
  Serious: Yes (Other)
  Sender: FDA-Public Use
  Company Number: TR-US-EMD SERONO, INC.-7061824

PATIENT
  Sex: Female
  Weight: 83 kg

DRUGS (1)
  1. REBIF [Suspect]
     Indication: RELAPSING-REMITTING MULTIPLE SCLEROSIS
     Route: 058
     Dates: start: 20051001

REACTIONS (8)
  - ASTHENIA [None]
  - CHOLESTASIS [None]
  - CHOLELITHIASIS [None]
  - THYROID DISORDER [None]
  - MULTIPLE SCLEROSIS RELAPSE [None]
  - HEPATIC ENZYME INCREASED [None]
  - NAUSEA [None]
  - OSTEOPOROSIS [None]
